FAERS Safety Report 4305621-2 (Version None)
Quarter: 2004Q1

REPORT INFORMATION
  Report Type: 
  Country: None (occurrence: None)
  Receive Date: 20040226
  Receipt Date: 20031216
  Transmission Date: 20041129
  Serious: No
  Sender: FDA-Public Use
  Company Number: US-BRISTOL-MYERS SQUIBB COMPANY-12459178

PATIENT
  Age: 34 Year
  Sex: Female

DRUGS (4)
  1. ABILIFY [Suspect]
     Indication: PSYCHOTIC DISORDER
     Route: 048
     Dates: start: 20030401
  2. ABILIFY [Suspect]
     Indication: HALLUCINATION
     Route: 048
     Dates: start: 20030401
  3. LEXAPRO [Concomitant]
  4. RISPERDAL [Concomitant]
     Route: 048
     Dates: start: 20031001, end: 20031213

REACTIONS (4)
  - CHEST PAIN [None]
  - HALLUCINATION [None]
  - PALPITATIONS [None]
  - PSYCHOTIC DISORDER [None]
